FAERS Safety Report 4695603-3 (Version None)
Quarter: 2005Q2

REPORT INFORMATION
  Report Type: 
  Country: None (occurrence: None)
  Receive Date: 20050608
  Receipt Date: 20050315
  Transmission Date: 20051028
  Serious: No
  Sender: FDA-Public Use
  Company Number: A03200500767

PATIENT
  Sex: Male

DRUGS (1)
  1. ELOXATIN [Suspect]
     Indication: COLON CANCER STAGE II
     Dosage: 65 MG/M2 OTHER - INTRAVENOUS NOS
     Route: 042

REACTIONS (1)
  - TINNITUS [None]
